FAERS Safety Report 8561487 (Version 3)
Quarter: 2013Q3

REPORT INFORMATION
  Report Type: Spontaneous
  Country: US (occurrence: US)
  Receive Date: 20120515
  Receipt Date: 20130729
  Transmission Date: 20140515
  Serious: No
  Sender: FDA-Public Use
  Company Number: US-BIOGENIDEC-2012BI015389

PATIENT
  Age: 21 Year
  Sex: Female

DRUGS (2)
  1. TYSABRI [Suspect]
     Indication: MULTIPLE SCLEROSIS
     Route: 042
     Dates: start: 20110113, end: 20111013
  2. AVONEX [Concomitant]
     Indication: MULTIPLE SCLEROSIS
     Route: 030
     Dates: start: 20120417

REACTIONS (5)
  - Pain [Not Recovered/Not Resolved]
  - Bradycardia [Recovered/Resolved]
  - Memory impairment [Recovered/Resolved]
  - Heart rate decreased [Recovered/Resolved]
  - Drug specific antibody present [Not Recovered/Not Resolved]
